FAERS Safety Report 21418835 (Version 1)
Quarter: 2022Q4

REPORT INFORMATION
  Report Type: Spontaneous
  Country: CL (occurrence: CL)
  Receive Date: 20221006
  Receipt Date: 20221006
  Transmission Date: 20230112
  Serious: Yes (Other)
  Sender: FDA-Public Use
  Company Number: CL-009507513-2210CHL000979

PATIENT
  Sex: Female

DRUGS (1)
  1. KEYTRUDA [Suspect]
     Active Substance: PEMBROLIZUMAB
     Indication: Hodgkin^s disease
     Dosage: UNK

REACTIONS (1)
  - Adverse event [Unknown]
